FAERS Safety Report 4708853-4 (Version None)
Quarter: 2005Q3

REPORT INFORMATION
  Report Type: 
  Country: None (occurrence: None)
  Receive Date: 20050705
  Receipt Date: 20050624
  Transmission Date: 20060218
  Serious: Yes (Death, Hospitalization, Other)
  Sender: FDA-Public Use
  Company Number: 2005FR-00034

PATIENT
  Age: 87 Year
  Sex: Male
  Weight: 57 kg

DRUGS (7)
  1. ASPIRIN [Suspect]
     Indication: PROPHYLAXIS
     Dosage: 75 MG, ORAL
     Route: 048
     Dates: end: 20050405
  2. ALLOPURINOL [Concomitant]
  3. ZOLPIDEM [Concomitant]
  4. RAMIPRIL [Concomitant]
  5. FRUSEMIDE [Concomitant]
  6. DILTIAZEM HCL [Concomitant]
  7. GTN [Concomitant]

REACTIONS (1)
  - GASTROINTESTINAL HAEMORRHAGE [None]
